FAERS Safety Report 5114913-9 (Version None)
Quarter: 2006Q3

REPORT INFORMATION
  Report Type: 
  Country: None (occurrence: None)
  Receive Date: 20060921
  Receipt Date: 20060908
  Transmission Date: 20061208
  Serious: Yes (Life-Threatening, Hospitalization)
  Sender: FDA-Public Use
  Company Number: 2006RR-03577

PATIENT
  Age: 33 Year
  Sex: Female
  Weight: 45 kg

DRUGS (3)
  1. FLUCONAZOLE [Suspect]
     Indication: PNEUMONIA FUNGAL
     Dosage: SEE IMAGE, INTRAVENOUS
     Route: 042
  2. DOMPERIDONE (DOMPERIDONE) [Concomitant]
  3. PIPERACILLIN [Concomitant]

REACTIONS (10)
  - BRADYCARDIA [None]
  - CANDIDA PNEUMONIA [None]
  - DISEASE RECURRENCE [None]
  - ELECTROCARDIOGRAM T WAVE ABNORMAL [None]
  - HAEMODIALYSIS [None]
  - LUNG INFECTION PSEUDOMONAL [None]
  - PNEUMONIA [None]
  - PULMONARY SEPSIS [None]
  - RENAL IMPAIRMENT [None]
  - TORSADE DE POINTES [None]
